FAERS Safety Report 12563380 (Version 2)
Quarter: 2016Q4

REPORT INFORMATION
  Report Type: Report from Study
  Country: US (occurrence: US)
  Receive Date: 20160715
  Receipt Date: 20161102
  Transmission Date: 20170207
  Serious: Yes (Hospitalization)
  Sender: FDA-Public Use
  Company Number: US-ACTELION-A-US2016-138990

PATIENT
  Age: 76 Year
  Sex: Female

DRUGS (21)
  1. PROTONIX [Concomitant]
     Active Substance: PANTOPRAZOLE SODIUM
  2. ATROVENT [Concomitant]
     Active Substance: IPRATROPIUM BROMIDE
  3. VOLTAREN [Concomitant]
     Active Substance: DICLOFENAC SODIUM
  4. CALCIUM [Concomitant]
     Active Substance: CALCIUM
  5. PROPRANOLOL [Concomitant]
     Active Substance: PROPRANOLOL\PROPRANOLOL HYDROCHLORIDE
  6. ALBUTEROL. [Concomitant]
     Active Substance: ALBUTEROL
  7. ASPIRIN. [Concomitant]
     Active Substance: ASPIRIN
  8. DOXAZOSIN [Concomitant]
     Active Substance: DOXAZOSIN\DOXAZOSIN MESYLATE
  9. HYDROCHLOROTHIAZIDE W/TRIAMTERENE [Concomitant]
     Active Substance: HYDROCHLOROTHIAZIDE\TRIAMTERENE
  10. LOSARTAN. [Concomitant]
     Active Substance: LOSARTAN
  11. AMLODIPINE [Concomitant]
     Active Substance: AMLODIPINE BESYLATE
  12. JANUVIA [Concomitant]
     Active Substance: SITAGLIPTIN PHOSPHATE
  13. OPSUMIT [Suspect]
     Active Substance: MACITENTAN
     Indication: PULMONARY ARTERIAL HYPERTENSION
     Dosage: 10 MG, QD
     Route: 048
     Dates: start: 20160511
  14. METOPROLOL. [Concomitant]
     Active Substance: METOPROLOL
  15. ALENDRONATE [Concomitant]
     Active Substance: ALENDRONATE SODIUM
  16. MAGNESIUM OXIDE. [Concomitant]
     Active Substance: MAGNESIUM OXIDE
  17. BUMETANIDE. [Concomitant]
     Active Substance: BUMETANIDE
  18. JANUMET [Concomitant]
     Active Substance: METFORMIN HYDROCHLORIDE\SITAGLIPTIN PHOSPHATE
  19. PREDNISONE. [Concomitant]
     Active Substance: PREDNISONE
  20. ALPRAZOLAM. [Concomitant]
     Active Substance: ALPRAZOLAM
  21. DILTIAZEM. [Concomitant]
     Active Substance: DILTIAZEM

REACTIONS (6)
  - Pneumonia [Unknown]
  - Fluid retention [Unknown]
  - Dizziness [Unknown]
  - Lung disorder [Unknown]
  - Sepsis [Unknown]
  - Urinary tract infection [Unknown]
